FAERS Safety Report 6830292-0 (Version None)
Quarter: 2010Q3

REPORT INFORMATION
  Report Type: 
  Country: None (occurrence: None)
  Receive Date: 20100712
  Receipt Date: 20100701
  Transmission Date: 20110219
  Serious: Yes (Hospitalization)
  Sender: FDA-Public Use
  Company Number: US-BIOGENIDEC-2010BI005215

PATIENT
  Sex: Female
  Weight: 79 kg

DRUGS (18)
  1. AVONEX [Suspect]
     Indication: MULTIPLE SCLEROSIS
     Route: 030
     Dates: start: 19960101
  2. AVONEX [Suspect]
     Route: 030
     Dates: end: 20040901
  3. AVONEX [Suspect]
     Route: 030
     Dates: start: 20041201, end: 20080729
  4. AVONEX [Suspect]
     Route: 030
  5. METOPROLOL [Concomitant]
     Indication: BLOOD CHOLESTEROL INCREASED
     Route: 048
  6. HYDROCHLOROTHIAZIDE [Concomitant]
     Route: 048
  7. GLIPIZIDE [Concomitant]
     Route: 048
  8. FLOEXETINE [Concomitant]
     Route: 048
  9. BACLOFEN [Concomitant]
     Route: 048
  10. RAMIPRIL [Concomitant]
     Route: 048
  11. AMLODIPINE [Concomitant]
     Route: 048
  12. TRICOR [Concomitant]
     Route: 048
  13. CALCIUM CARBONATE [Concomitant]
     Route: 048
  14. IRON [Concomitant]
     Route: 048
  15. VITAMIN TAB [Concomitant]
     Route: 048
  16. VITAMIN B [Concomitant]
     Route: 048
  17. VYTORIN [Concomitant]
  18. MAGNESIUM CHLORIDE [Concomitant]
     Route: 048

REACTIONS (5)
  - CORONARY ARTERY OCCLUSION [None]
  - DYSPNOEA [None]
  - FALL [None]
  - INFLUENZA LIKE ILLNESS [None]
  - KNEE ARTHROPLASTY [None]
